FAERS Safety Report 6167122-9 (Version None)
Quarter: 2009Q2

REPORT INFORMATION
  Report Type: 
  Country: None (occurrence: None)
  Receive Date: 20090424
  Receipt Date: 20090414
  Transmission Date: 20091009
  Serious: Yes (Other)
  Sender: FDA-Public Use
  Company Number: US-TYCO HEALTHCARE/MALLINCKRODT-T200801474

PATIENT
  Sex: Female
  Weight: 54.4 kg

DRUGS (10)
  1. ACETAMINOPHEN AND HYDROCODONE BITARTRATE [Suspect]
     Indication: NECK PAIN
     Dosage: 1 TABLET Q 8 HOURS
     Route: 048
     Dates: start: 20080817, end: 20080817
  2. ACETAMINOPHEN AND HYDROCODONE BITARTRATE [Suspect]
     Indication: MUSCULOSKELETAL PAIN
  3. ACETAMINOPHEN AND HYDROCODONE BITARTRATE [Suspect]
     Indication: BACK PAIN
  4. TYLENOL (CAPLET) [Concomitant]
     Dosage: 325 MG, Q 4-6 HR
     Route: 048
  5. CALCIUM CITRATE W/VITAMIN D NOS [Concomitant]
  6. MULTIVITAMIN                       /00831701/ [Concomitant]
  7. ALEVE [Concomitant]
  8. LOVAZA [Concomitant]
  9. VITAMIN E                          /00110501/ [Concomitant]
  10. HERBAL PREPARATION [Concomitant]

REACTIONS (6)
  - ANXIETY [None]
  - ASTHENIA [None]
  - DIZZINESS [None]
  - NAUSEA [None]
  - SYNCOPE [None]
  - VOMITING [None]
